FAERS Safety Report 8356667 (Version 5)
Quarter: 2014Q3

REPORT INFORMATION
  Report Type: Spontaneous
  Country: DE (occurrence: DE)
  Receive Date: 20120126
  Receipt Date: 20140807
  Transmission Date: 20150326
  Serious: Yes (Hospitalization)
  Sender: FDA-Public Use
  Company Number: DE-GLAXOSMITHKLINE-D0064391A

PATIENT
  Age: 35 Year
  Sex: Male

DRUGS (10)
  1. HAVRIX [Suspect]
     Active Substance: HEPATITIS A VIRUS STRAIN HM175 ANTIGEN (FORMALDEHYDE INACTIVATED)
     Indication: PROPHYLAXIS
     Route: 065
     Dates: start: 20010508, end: 20010508
  2. IPV VIRELON [Concomitant]
     Indication: PROPHYLAXIS
     Route: 065
     Dates: start: 19990611, end: 19990611
  3. DIPHTHERIA AND TETANUS TOXOIDS ADSORBED [Suspect]
     Active Substance: CLOSTRIDIUM TETANI TOXOID ANTIGEN (FORMALDEHYDE INACTIVATED)\CORYNEBACTERIUM DIPHTHERIAE TOXOID ANTIGEN (FORMALDEHYDE INACTIVATED)\DIPHTHERIA AND TETANUS TOXOIDS ADSORBED
     Indication: PROPHYLAXIS
     Route: 065
     Dates: start: 19990611, end: 19990611
  4. IPV VIRELON [Concomitant]
     Indication: PROPHYLAXIS
     Route: 065
     Dates: start: 19980928, end: 19980928
  5. ITRACONAZOL [Suspect]
     Active Substance: ITRACONAZOLE
     Route: 048
  6. YELLOW FEVER VACCINE NOS [Concomitant]
     Active Substance: YELLOW FEVER VIRUS STRAIN 17D-204 LIVE ANTIGEN
     Indication: PROPHYLAXIS
     Route: 065
     Dates: start: 20000816, end: 20000816
  7. DIPHTHERIA AND TETANUS TOXOIDS ADSORBED [Suspect]
     Active Substance: CLOSTRIDIUM TETANI TOXOID ANTIGEN (FORMALDEHYDE INACTIVATED)\CORYNEBACTERIUM DIPHTHERIAE TOXOID ANTIGEN (FORMALDEHYDE INACTIVATED)\DIPHTHERIA AND TETANUS TOXOIDS ADSORBED
     Indication: PROPHYLAXIS
     Route: 065
     Dates: start: 19981103, end: 19981103
  8. MUTAGRIP [Concomitant]
     Active Substance: INFLUENZA VIRUS VACCINE
     Indication: PROPHYLAXIS
     Route: 065
     Dates: start: 19981103, end: 19981103
  9. VAQTA [Suspect]
     Active Substance: HEPATITIS A VIRUS STRAIN CR 326F ANTIGEN (FORMALDEHYDE INACTIVATED)
     Indication: PROPHYLAXIS
     Route: 065
     Dates: start: 20000816, end: 20000816
  10. DIPHTHERIA AND TETANUS TOXOIDS ADSORBED [Suspect]
     Active Substance: CLOSTRIDIUM TETANI TOXOID ANTIGEN (FORMALDEHYDE INACTIVATED)\CORYNEBACTERIUM DIPHTHERIAE TOXOID ANTIGEN (FORMALDEHYDE INACTIVATED)\DIPHTHERIA AND TETANUS TOXOIDS ADSORBED
     Indication: PROPHYLAXIS
     Route: 065
     Dates: start: 19980928, end: 19980928

REACTIONS (16)
  - Myelitis transverse [Unknown]
  - Paraesthesia [Recovering/Resolving]
  - Asthenia [Unknown]
  - Vaccination complication [Unknown]
  - Multiple sclerosis [Unknown]
  - Vertigo [Recovered/Resolved]
  - Paraplegia [Unknown]
  - Cognitive disorder [Unknown]
  - Irritable bowel syndrome [Unknown]
  - Gait disturbance [Recovered/Resolved]
  - Malaise [Recovered/Resolved]
  - Myelitis [Unknown]
  - Hypoaesthesia [Unknown]
  - Coordination abnormal [Unknown]
  - Diarrhoea [Recovered/Resolved]
  - Fatigue [Recovered/Resolved]

NARRATIVE: CASE EVENT DATE: 2001
